FAERS Safety Report 18775085 (Version 1)
Quarter: 2021Q1

REPORT INFORMATION
  Report Type: Spontaneous
  Country: US (occurrence: US)
  Receive Date: 20210122
  Receipt Date: 20210122
  Transmission Date: 20210419
  Serious: Yes (Other)
  Sender: FDA-Public Use
  Company Number: US-CADILA HEALTHCARE LIMITED-US-ZYDUS-060972

PATIENT

DRUGS (5)
  1. CALCITRIOL. [Suspect]
     Active Substance: CALCITRIOL
     Dosage: DOSE REDUCED
     Route: 065
  2. CALCITRIOL. [Suspect]
     Active Substance: CALCITRIOL
     Indication: HYPOTHYROIDISM
     Dosage: 0.75 MILLIGRAM, QD
     Route: 065
  3. CINACALCET. [Suspect]
     Active Substance: CINACALCET
     Indication: HYPOTHYROIDISM
     Dosage: 30 MICROGRAM, QOD
     Route: 065
  4. ERGOCALCIFEROL. [Suspect]
     Active Substance: ERGOCALCIFEROL
     Dosage: DOSE REDUCED
     Route: 065
  5. ERGOCALCIFEROL. [Suspect]
     Active Substance: ERGOCALCIFEROL
     Indication: HYPOTHYROIDISM
     Dosage: 50000 UNIT WEEKLY
     Route: 065

REACTIONS (1)
  - Calciphylaxis [Recovered/Resolved]
